FAERS Safety Report 8936917 (Version 3)
Quarter: 2013Q1

REPORT INFORMATION
  Report Type: Report from Study
  Country: DE (occurrence: DE)
  Receive Date: 20121130
  Receipt Date: 20130125
  Transmission Date: 20140127
  Serious: Yes (Other)
  Sender: FDA-Public Use
  Company Number: DE-CELGENEUS-062-21880-12113012

PATIENT
  Age: 73 Year
  Sex: Male
  Weight: 90 kg

DRUGS (14)
  1. REVLIMID [Suspect]
     Indication: PLASMA CELL MYELOMA
     Dosage: 25 MILLIGRAM
     Route: 048
     Dates: start: 20100715, end: 20100730
  2. REVLIMID [Suspect]
     Dosage: 25 MILLIGRAM
     Route: 048
     Dates: start: 20110128
  3. REVLIMID [Suspect]
     Dosage: 15 MILLIGRAM
     Route: 048
     Dates: start: 20101202, end: 20101222
  4. REVLIMID [Suspect]
     Dosage: 25 MILLIGRAM
     Route: 048
     Dates: start: 20110130, end: 20110219
  5. REVLIMID [Suspect]
     Route: 048
     Dates: end: 20120709
  6. REVLIMID [Suspect]
     Route: 048
     Dates: start: 201004
  7. REVLIMID [Suspect]
     Route: 048
     Dates: start: 201008
  8. DEXAMETHASONE [Suspect]
     Indication: PLASMA CELL MYELOMA
     Route: 048
     Dates: start: 20100715, end: 20100730
  9. DEXAMETHASONE [Suspect]
     Route: 048
     Dates: start: 20110128
  10. DEXAMETHASONE [Suspect]
     Route: 048
     Dates: start: 20101202, end: 20101222
  11. DEXAMETHASONE [Suspect]
     Route: 048
     Dates: end: 20120709
  12. DEXAMETHASONE [Suspect]
     Route: 048
     Dates: start: 201004
  13. DEXAMETHASONE [Suspect]
     Route: 065
     Dates: start: 201106
  14. MARCUMAR [Concomitant]
     Indication: PROPHYLAXIS
     Route: 065
     Dates: start: 20100713

REACTIONS (1)
  - Lentigo maligna [Recovered/Resolved]
